FAERS Safety Report 17065443 (Version 2)
Quarter: 2019Q4

REPORT INFORMATION
  Report Type: Spontaneous
  Country: US (occurrence: US)
  Receive Date: 20191122
  Receipt Date: 20191217
  Transmission Date: 20200122
  Serious: Yes (Other)
  Sender: FDA-Public Use
  Company Number: US-GLAXOSMITHKLINE-US2019GSK207901

PATIENT
  Sex: Male

DRUGS (1)
  1. PREVACID [Suspect]
     Active Substance: LANSOPRAZOLE
     Indication: GASTROOESOPHAGEAL REFLUX DISEASE
     Dosage: 15 MG, QD
     Route: 065

REACTIONS (14)
  - Dialysis [Not Recovered/Not Resolved]
  - Proteinuria [Unknown]
  - Chronic kidney disease [Unknown]
  - Nephrotic syndrome [Unknown]
  - Renal tubular atrophy [Unknown]
  - Device dependence [Unknown]
  - Nephropathy [Unknown]
  - End stage renal disease [Not Recovered/Not Resolved]
  - Nephrogenic anaemia [Unknown]
  - Nocturia [Unknown]
  - Urine abnormality [Unknown]
  - Acute kidney injury [Not Recovered/Not Resolved]
  - Glomerulonephritis membranous [Unknown]
  - Glomerulonephritis [Unknown]
